FAERS Safety Report 25615868 (Version 1)
Quarter: 2025Q3

REPORT INFORMATION
  Report Type: Spontaneous
  Country: US (occurrence: US)
  Receive Date: 20250729
  Receipt Date: 20250729
  Transmission Date: 20251020
  Serious: No
  Sender: APOTEX
  Company Number: US-APOTEX-2025AP009678

PATIENT
  Age: 62 Year
  Sex: Female

DRUGS (1)
  1. PAZOPANIB [Suspect]
     Active Substance: PAZOPANIB
     Indication: Malignant ossifying fibromyxoid tumour
     Route: 065

REACTIONS (1)
  - Hypertransaminasaemia [Recovered/Resolved]
